FAERS Safety Report 8580577-5 (Version None)
Quarter: 2012Q3

REPORT INFORMATION
  Report Type: 
  Country: None (occurrence: None)
  Receive Date: 20120808
  Receipt Date: 20120808
  Transmission Date: 20120928
  Serious: Yes (Hospitalization, Other)
  Sender: FDA-Public Use
  Company Number: IT-BRISTOL-MYERS SQUIBB COMPANY-16818007

PATIENT
  Age: 84 Year
  Sex: Female

DRUGS (7)
  1. PANTOPRAZOLE SODIUM [Concomitant]
  2. ALDACTONE [Concomitant]
  3. LASIX [Concomitant]
     Dosage: 4DOSES
     Route: 048
  4. REPAGLINIDE [Concomitant]
  5. COUMADIN [Suspect]
     Indication: ATRIAL FIBRILLATION
     Dosage: 1DOSE:AS NECESSARY
     Route: 048
     Dates: start: 20111123, end: 20120712
  6. ALLOPURINOL [Concomitant]
  7. ENOXAPARIN SODIUM [Suspect]
     Indication: PULMONARY EMBOLISM
     Route: 048
     Dates: start: 20120704, end: 20120712

REACTIONS (2)
  - PULMONARY EMBOLISM [None]
  - SUBARACHNOID HAEMORRHAGE [None]
